FAERS Safety Report 5532825-3 (Version None)
Quarter: 2007Q4

REPORT INFORMATION
  Report Type: 
  Country: None (occurrence: None)
  Receive Date: 20071130
  Receipt Date: 20071130
  Transmission Date: 20080405
  Serious: No
  Sender: FDA-Public Use
  Company Number: None

PATIENT
  Age: 80 Year
  Sex: Male

DRUGS (2)
  1. ACTIVASE [Suspect]
     Indication: MYOCARDIAL INFARCTION
     Dosage: 96MG ONCE IV
     Route: 042
     Dates: start: 20071007, end: 20071007
  2. HEPARIN [Suspect]
     Indication: MYOCARDIAL INFARCTION
     Dosage: 680 UNITS PER HOUR IV
     Route: 042
     Dates: start: 20071007, end: 20071008

REACTIONS (1)
  - GASTROINTESTINAL HAEMORRHAGE [None]
